FAERS Safety Report 6439227-6 (Version None)
Quarter: 2009Q4

REPORT INFORMATION
  Report Type: 
  Country: None (occurrence: None)
  Receive Date: 20091110
  Receipt Date: 20091026
  Transmission Date: 20100525
  Serious: Yes (Death, Hospitalization)
  Sender: FDA-Public Use
  Company Number: 2009AC000168

PATIENT
  Age: 58 Year
  Sex: Male
  Weight: 88.4514 kg

DRUGS (21)
  1. DIGOXIN [Suspect]
     Dosage: 0.25 MG;QD;PO
     Route: 048
     Dates: start: 20080906, end: 20081106
  2. LISINOPRIL [Concomitant]
  3. LOVASTATIN [Concomitant]
  4. LASIX [Concomitant]
  5. COREG [Concomitant]
  6. COZAAR [Concomitant]
  7. JANTOVEN [Concomitant]
  8. GLIPIZIDE [Concomitant]
  9. SPIRONOLACTONE [Concomitant]
  10. COUMADIN [Concomitant]
  11. ISOSORBIDE [Concomitant]
  12. TERAZOSIN HCL [Concomitant]
  13. ALDACTONE [Concomitant]
  14. FLOMAX [Concomitant]
  15. ZOCOR [Concomitant]
  16. NITROGLYCERIN [Concomitant]
  17. HEPARIN [Concomitant]
  18. ASPIRIN [Concomitant]
  19. CIPRO [Concomitant]
  20. NITROFURANTOIN [Concomitant]
  21. TYLENOL W/ CODEINE NO. 3 [Concomitant]

REACTIONS (11)
  - ANXIETY [None]
  - CARDIAC FAILURE CONGESTIVE [None]
  - CONGESTIVE CARDIOMYOPATHY [None]
  - CORONARY ARTERY DISEASE [None]
  - DYSPNOEA [None]
  - ECONOMIC PROBLEM [None]
  - FATIGUE [None]
  - HYPOAESTHESIA [None]
  - INJURY [None]
  - PAIN [None]
  - PARAESTHESIA [None]
